FAERS Safety Report 9664532 (Version 1)
Quarter: 2013Q4

REPORT INFORMATION
  Report Type: Spontaneous
  Country: US (occurrence: None)
  Receive Date: 20131030
  Receipt Date: 20131030
  Transmission Date: 20140711
  Serious: Yes (Other)
  Sender: FDA-Public Use
  Company Number: None

PATIENT
  Age: 9 Year
  Sex: Male
  Weight: 42.18 kg

DRUGS (1)
  1. METHYLPHENIDATE HYDROCHLORIDE [Suspect]
     Indication: ATTENTION DEFICIT/HYPERACTIVITY DISORDER
     Dosage: ONE PO Q AM
     Route: 048
     Dates: start: 201103, end: 201104

REACTIONS (4)
  - Abdominal pain upper [None]
  - Headache [None]
  - Therapeutic response unexpected with drug substitution [None]
  - Product substitution issue [None]
